FAERS Safety Report 10535683 (Version 1)
Quarter: 2014Q4

REPORT INFORMATION
  Report Type: Spontaneous
  Country: US (occurrence: US)
  Receive Date: 20141022
  Receipt Date: 20141022
  Transmission Date: 20150529
  Serious: No
  Sender: FDA-Public Use
  Company Number: US-RECKITT BENCKISER PHARMACEUTICAL, INC-RB-59694-2013

PATIENT

DRUGS (6)
  1. SUBOXONE [Suspect]
     Active Substance: BUPRENORPHINE HYDROCHLORIDE\NALOXONE HYDROCHLORIDE
     Dosage: SUBOXONE FILM; CUTTING BUT TAKING PRESCRIBED DOSE
     Route: 060
     Dates: start: 2013, end: 2013
  2. SUBOXONE [Suspect]
     Active Substance: BUPRENORPHINE HYDROCHLORIDE\NALOXONE HYDROCHLORIDE
     Dosage: SUBOXONE FILM
     Route: 060
     Dates: start: 2013
  3. ALCOHOL. [Suspect]
     Active Substance: ALCOHOL
     Indication: ALCOHOLISM
     Dosage: DOSING DETAILS UNKNOWN
     Route: 048
  4. SUBOXONE [Suspect]
     Active Substance: BUPRENORPHINE HYDROCHLORIDE\NALOXONE HYDROCHLORIDE
     Indication: DRUG DEPENDENCE
     Dosage: SUBOXONE FILM
     Route: 060
     Dates: start: 2012, end: 201302
  5. MARIJUANA [Suspect]
     Active Substance: CANNABIS SATIVA SUBSP. INDICA TOP
     Indication: SUBSTANCE USE
     Dosage: DOSING DETAILS UNKNOWN
     Route: 055
  6. UNKNOWN OPIOID [Suspect]
     Active Substance: UNSPECIFIED INGREDIENT
     Indication: SUBSTANCE USE
     Dosage: DOSING DETAILS UNKNOWN
     Route: 065
     Dates: start: 201302, end: 2013

REACTIONS (5)
  - Alcohol abuse [Not Recovered/Not Resolved]
  - Drug abuse [Not Recovered/Not Resolved]
  - Wrong technique in drug usage process [Recovered/Resolved]
  - Weight decreased [Not Recovered/Not Resolved]
  - Drug dependence [Recovered/Resolved]

NARRATIVE: CASE EVENT DATE: 2013
